FAERS Safety Report 6528492-2 (Version None)
Quarter: 2010Q1

REPORT INFORMATION
  Report Type: 
  Country: None (occurrence: None)
  Receive Date: 20100106
  Receipt Date: 20091229
  Transmission Date: 20100710
  Serious: Yes (Other)
  Sender: FDA-Public Use
  Company Number: ZA-PFIZER INC-2010000174

PATIENT
  Sex: Female

DRUGS (5)
  1. CADUET [Suspect]
     Indication: BLOOD CHOLESTEROL INCREASED
     Route: 048
  2. DIOVAN HCT [Concomitant]
     Indication: HYPERTENSION
     Dosage: UNK MG, UNK
     Route: 048
  3. SERETIDE [Concomitant]
     Route: 048
  4. MONTELUKAST [Concomitant]
     Dosage: 10 MG, UNK
     Route: 048
  5. ASPIRIN [Concomitant]
     Route: 048

REACTIONS (1)
  - BLOOD PRESSURE FLUCTUATION [None]
